FAERS Safety Report 23094335 (Version 3)
Quarter: 2024Q1

REPORT INFORMATION
  Report Type: Report from Study
  Country: GB (occurrence: GB)
  Receive Date: 20231023
  Receipt Date: 20240212
  Transmission Date: 20240410
  Serious: Yes (Other)
  Sender: FDA-Public Use
  Company Number: GB-IPSEN Group, Research and Development-2023-24203

PATIENT
  Age: 71 Year
  Sex: Female

DRUGS (1)
  1. LANREOTIDE ACETATE [Suspect]
     Active Substance: LANREOTIDE ACETATE
     Indication: Product used for unknown indication
     Route: 065

REACTIONS (4)
  - Nephrolithiasis [Not Recovered/Not Resolved]
  - Fatigue [Recovering/Resolving]
  - Cholelithiasis [Not Recovered/Not Resolved]
  - Nausea [Recovering/Resolving]

NARRATIVE: CASE EVENT DATE: 20240110
